FAERS Safety Report 19031260 (Version 2)
Quarter: 2021Q1

REPORT INFORMATION
  Report Type: Report from Study
  Country: JP (occurrence: JP)
  Receive Date: 20210319
  Receipt Date: 20210324
  Transmission Date: 20210420
  Serious: Yes (Hospitalization)
  Sender: FDA-Public Use
  Company Number: JP-ASTELLAS-2021JP005159

PATIENT
  Age: 63 Year
  Sex: Female
  Weight: 47 kg

DRUGS (18)
  1. AZUNOL GARGLE LIQUID [Concomitant]
     Indication: INFECTION PROPHYLAXIS
     Dosage: UNK UNK, AS NEEDED
     Route: 065
     Dates: start: 20210219
  2. MEROPENEM. [Concomitant]
     Active Substance: MEROPENEM
     Indication: PNEUMONIA
     Dosage: 1G/DAY, THRICE DAILY
     Route: 041
     Dates: start: 20210222
  3. CANCIDAS [Concomitant]
     Active Substance: CASPOFUNGIN ACETATE
     Indication: PNEUMONIA
     Route: 041
     Dates: start: 20210223
  4. LOCOID [Concomitant]
     Active Substance: HYDROCORTISONE BUTYRATE
     Indication: ECZEMA
     Dosage: AS APPROPRIATE, UNKNOWN FREQ.
     Route: 061
     Dates: start: 20210305
  5. TEICOPLANIN [Concomitant]
     Active Substance: TEICOPLANIN
     Indication: SKIN INFECTION
     Route: 041
     Dates: start: 20210226
  6. ANTEBATE [Concomitant]
     Active Substance: BETAMETHASONE DIPROPIONATE
     Indication: ECZEMA
     Dosage: AS APPROPRIATE, UNKNOWN FREQ.
     Route: 061
     Dates: start: 20210310
  7. CYTARABINE. [Suspect]
     Active Substance: CYTARABINE
     Dosage: CONSOLIDATION THERAPY: DAY1, DAY3, DAY5 WAS 1.5 G/M2, , TWICE DAILY
     Route: 042
  8. EURAX [Concomitant]
     Active Substance: CROTAMITON
     Indication: ECZEMA
     Dosage: AS APPROPRIATE, UNKNOWN FREQ.
     Route: 061
     Dates: start: 20210305
  9. ASP2215 [Suspect]
     Active Substance: GILTERITINIB
     Indication: ACUTE MYELOID LEUKAEMIA
     Dosage: 120 MG, ONCE DAILY, FROM DAY 8 TO DAY 21 IN CYCLE 1
     Route: 065
     Dates: start: 20210303
  10. IDARUBICIN [Suspect]
     Active Substance: IDARUBICIN
     Indication: ACUTE MYELOID LEUKAEMIA
     Route: 065
     Dates: start: 20210224, end: 20210226
  11. CYTARABINE. [Suspect]
     Active Substance: CYTARABINE
     Indication: ACUTE MYELOID LEUKAEMIA
     Dosage: REMISSION INDUCTION THERAPY: 100 MG/M2, ONCE DAILY, FROM DAY 1 TO DAY 7
     Route: 042
     Dates: start: 20210224, end: 20210303
  12. CALONAL [Concomitant]
     Active Substance: ACETAMINOPHEN
     Indication: PYREXIA
     Dosage: UNK UNK, AS NEEDED
     Route: 048
     Dates: start: 20210308
  13. POTASSIUM CHLORIDE. [Concomitant]
     Active Substance: POTASSIUM CHLORIDE
     Indication: HYPOKALAEMIA
     Route: 048
     Dates: start: 20210312
  14. RABEPRAZOLE NA [Concomitant]
     Active Substance: RABEPRAZOLE SODIUM
     Indication: GASTRITIS PROPHYLAXIS
     Route: 048
     Dates: start: 20200223
  15. WHITE PETROLATUM [Concomitant]
     Active Substance: PETROLATUM
     Indication: LIP DRY
     Dosage: AS APPROPRIATE, UNKNOWN FREQ.
     Route: 061
     Dates: start: 20210304
  16. HIRUDOID [Concomitant]
     Active Substance: GLYCOSAMINOGLYCANS
     Indication: DRY SKIN
     Dosage: AS APPROPRIATE, UNKNOWN FREQ.
     Route: 061
     Dates: start: 20210310
  17. TELMISARTAN. [Concomitant]
     Active Substance: TELMISARTAN
     Indication: HYPERTENSION
     Route: 048
     Dates: start: 20200311
  18. ACUATIM [Concomitant]
     Active Substance: NADIFLOXACIN
     Indication: SKIN INFECTION
     Dosage: AS APPROPRIATE, UNKNOWN FREQ.
     Route: 061
     Dates: start: 20210226

REACTIONS (1)
  - Pneumonia [Not Recovered/Not Resolved]

NARRATIVE: CASE EVENT DATE: 20210316
